FAERS Safety Report 9781082 (Version 2)
Quarter: 2013Q4

REPORT INFORMATION
  Report Type: Spontaneous
  Country: US (occurrence: US)
  Receive Date: 20131224
  Receipt Date: 20131231
  Transmission Date: 20140711
  Serious: Yes (Hospitalization)
  Sender: FDA-Public Use
  Company Number: 2013SP003674

PATIENT
  Age: 69 Year
  Sex: Female

DRUGS (7)
  1. LATUDA [Suspect]
     Indication: BIPOLAR I DISORDER
     Route: 048
  2. LOSARTAN [Concomitant]
  3. COREG [Concomitant]
  4. ALL OTHER THERAPEUTIC PRODUCTS [Concomitant]
  5. HYDROCHLOROTHIAZIDE [Concomitant]
  6. LASIX                              /00032601/ [Concomitant]
  7. METFORMIN [Concomitant]
     Indication: DIABETES MELLITUS

REACTIONS (5)
  - Oedema peripheral [Recovering/Resolving]
  - Blood pressure increased [Not Recovered/Not Resolved]
  - Renal disorder [Unknown]
  - Blood glucose decreased [Unknown]
  - Diarrhoea [Unknown]
